FAERS Safety Report 7755628-8 (Version None)
Quarter: 2011Q3

REPORT INFORMATION
  Report Type: 
  Country: None (occurrence: None)
  Receive Date: 20110916
  Receipt Date: 20110912
  Transmission Date: 20111222
  Serious: No
  Sender: FDA-Public Use
  Company Number: US-PFIZER INC-2011214512

PATIENT
  Sex: Female
  Weight: 47.2 kg

DRUGS (4)
  1. LEVOTHYROXINE [Concomitant]
     Indication: THYROID DISORDER
     Dosage: UNK
  2. PREMARIN [Suspect]
     Indication: VULVOVAGINAL DRYNESS
     Dosage: UNK
     Route: 067
     Dates: start: 20110908, end: 20110910
  3. HYDROCHLOROTHIAZIDE [Concomitant]
     Indication: HYPERTENSION
     Dosage: UNK
  4. AMLODIPINE [Concomitant]
     Indication: HYPERTENSION
     Dosage: UNK

REACTIONS (7)
  - INSOMNIA [None]
  - PRURITUS GENERALISED [None]
  - BACK PAIN [None]
  - VOMITING [None]
  - ABDOMINAL PAIN UPPER [None]
  - NIGHTMARE [None]
  - NAUSEA [None]
